FAERS Safety Report 12275976 (Version 1)
Quarter: 2016Q2

REPORT INFORMATION
  Report Type: Spontaneous
  Country: US (occurrence: None)
  Receive Date: 20160415
  Receipt Date: 20160415
  Transmission Date: 20160815
  Serious: Yes (Life-Threatening, Hospitalization)
  Sender: FDA-Public Use
  Company Number: None

PATIENT
  Age: 86 Year
  Sex: Male
  Weight: 94 kg

DRUGS (13)
  1. NITROGLYCERIN. [Concomitant]
     Active Substance: NITROGLYCERIN
  2. FINASTERIDE. [Concomitant]
     Active Substance: FINASTERIDE
  3. ZETIA [Concomitant]
     Active Substance: EZETIMIBE
  4. ASPIRIN. [Concomitant]
     Active Substance: ASPIRIN
  5. COREG [Concomitant]
     Active Substance: CARVEDILOL
  6. VITAMIN D [Concomitant]
     Active Substance: CHOLECALCIFEROL
  7. PRAVASTATIN [Concomitant]
     Active Substance: PRAVASTATIN\PRAVASTATIN SODIUM
  8. XARELTO [Suspect]
     Active Substance: RIVAROXABAN
     Indication: ATRIAL FIBRILLATION
     Route: 048
     Dates: start: 20160404, end: 20160412
  9. ALENDRONATE [Concomitant]
     Active Substance: ALENDRONATE SODIUM
  10. LOSARTAN. [Concomitant]
     Active Substance: LOSARTAN
  11. AMLODIPINE [Concomitant]
     Active Substance: AMLODIPINE BESYLATE
  12. LORAZEPAM. [Concomitant]
     Active Substance: LORAZEPAM
  13. FLOMAX [Concomitant]
     Active Substance: TAMSULOSIN HYDROCHLORIDE

REACTIONS (3)
  - Presyncope [None]
  - Cardiac tamponade [None]
  - Pericardial effusion [None]

NARRATIVE: CASE EVENT DATE: 20160412
